FAERS Safety Report 9583325 (Version 1)
Quarter: 2013Q4

REPORT INFORMATION
  Report Type: Spontaneous
  Country: US (occurrence: US)
  Receive Date: 20131002
  Receipt Date: 20131002
  Transmission Date: 20140711
  Serious: No
  Sender: FDA-Public Use
  Company Number: US-AMGEN-USASP2013045913

PATIENT
  Age: 65 Year
  Sex: Female
  Weight: 58.05 kg

DRUGS (9)
  1. ENBREL [Suspect]
     Indication: PRODUCT USED FOR UNKNOWN INDICATION
     Dosage: 50 MG, QWK
     Route: 058
  2. DETROL LA [Concomitant]
     Dosage: 4 MG, UNK
  3. VOLTAREN                           /00372301/ [Concomitant]
     Dosage: 50 MG, UNK
  4. PREMARIN [Concomitant]
     Dosage: 0.45 MG, UNK
  5. PREDNISONE [Concomitant]
     Dosage: 10 MG, UNK
  6. ASPIRIN [Concomitant]
     Dosage: 81 MG, UNK, ADULT
  7. LEVOXYL [Concomitant]
     Dosage: 100 MUG, UNK
  8. VITAMIN D3 [Concomitant]
     Dosage: 1000 UNIT, UNK
  9. APRISO [Concomitant]
     Dosage: 0.375 G, UNK

REACTIONS (2)
  - Injection site bruising [Unknown]
  - Injection site erythema [Unknown]
